FAERS Safety Report 9167762 (Version 1)
Quarter: 2013Q1

REPORT INFORMATION
  Report Type: Spontaneous
  Country: US (occurrence: US)
  Receive Date: 20130318
  Receipt Date: 20130318
  Transmission Date: 20140127
  Serious: No
  Sender: FDA-Public Use
  Company Number: US-PFIZER INC-2013083856

PATIENT
  Age: 22 Year
  Sex: Male
  Weight: 83.9 kg

DRUGS (1)
  1. ADVIL PM [Suspect]
     Dosage: 2 CAPLETS, DAILY FOR 6 DAYS A WEEK
     Dates: start: 201302, end: 2013

REACTIONS (1)
  - Drug screen positive [Unknown]
